FAERS Safety Report 13194987 (Version 1)
Quarter: 2017Q1

REPORT INFORMATION
  Report Type: Spontaneous
  Country: GB (occurrence: GB)
  Receive Date: 20170207
  Receipt Date: 20170207
  Transmission Date: 20170428
  Serious: Yes (Other)
  Sender: FDA-Public Use
  Company Number: GB-MYLANLABS-2017M1007387

PATIENT

DRUGS (4)
  1. XENIDATE XL [Suspect]
     Active Substance: METHYLPHENIDATE
     Indication: ATTENTION DEFICIT/HYPERACTIVITY DISORDER
     Dosage: 54 MG, UNK
     Route: 048
     Dates: start: 20161218, end: 20161222
  2. PARACETAMOL [Concomitant]
     Active Substance: ACETAMINOPHEN
     Indication: PAIN
     Dosage: 250 MG, UNK
  3. CONCERTA [Concomitant]
     Active Substance: METHYLPHENIDATE HYDROCHLORIDE
     Indication: ATTENTION DEFICIT/HYPERACTIVITY DISORDER
     Dosage: 36 MG, UNK
  4. MELATONIN [Concomitant]
     Active Substance: MELATONIN
     Dosage: AT BEDTIME.
     Dates: start: 2015

REACTIONS (6)
  - Mydriasis [Recovered/Resolved]
  - Anxiety [Recovered/Resolved]
  - Paranoia [Recovered/Resolved]
  - Sensory disturbance [Recovered/Resolved]
  - Product substitution issue [Unknown]
  - Muscle twitching [Recovered/Resolved]

NARRATIVE: CASE EVENT DATE: 20161218
